FAERS Safety Report 21609528 (Version 2)
Quarter: 2022Q4

REPORT INFORMATION
  Report Type: Spontaneous
  Country: JP (occurrence: JP)
  Receive Date: 20221117
  Receipt Date: 20221223
  Transmission Date: 20230112
  Serious: Yes (Hospitalization, Other)
  Sender: FDA-Public Use
  Company Number: JP-JNJFOC-20221123898

PATIENT
  Age: 5 Decade
  Sex: Male

DRUGS (3)
  1. INVEGA [Suspect]
     Active Substance: PALIPERIDONE
     Indication: Product used for unknown indication
     Dosage: DOSE UNKNOWN
     Route: 048
  2. INVEGA [Suspect]
     Active Substance: PALIPERIDONE
     Indication: Product used for unknown indication
     Route: 048
  3. INVEGA [Suspect]
     Active Substance: PALIPERIDONE
     Dosage: DOSE UNKNOWN
     Route: 048

REACTIONS (3)
  - Condition aggravated [Unknown]
  - Blood creatine phosphokinase increased [Recovering/Resolving]
  - Treatment noncompliance [Unknown]
